FAERS Safety Report 9168628 (Version 2)
Quarter: 2013Q2

REPORT INFORMATION
  Report Type: Spontaneous
  Country: US (occurrence: US)
  Receive Date: 20130318
  Receipt Date: 20130424
  Transmission Date: 20140414
  Serious: Yes (Hospitalization, Other)
  Sender: FDA-Public Use
  Company Number: US-PFIZER INC-2013088959

PATIENT
  Age: 47 Year
  Sex: Female
  Weight: 67.57 kg

DRUGS (16)
  1. LYRICA [Suspect]
     Indication: FIBROMYALGIA
     Dosage: 75 MG, 3X/DAY
     Route: 048
  2. LYRICA [Suspect]
     Dosage: 100 MG, UNK
     Route: 048
  3. LYRICA [Suspect]
     Dosage: 200 MG, 3X/DAY
     Route: 048
  4. LYRICA [Suspect]
     Dosage: UNK
     Route: 048
  5. IPRATROPIUM BROMIDE [Concomitant]
     Indication: BRONCHITIS
     Dosage: 0.5 MG, 4X/DAY
  6. IPRATROPIUM BROMIDE [Concomitant]
     Indication: ASTHMA
  7. COMBIVENT [Concomitant]
     Indication: BRONCHITIS
     Dosage: UNK
  8. COMBIVENT [Concomitant]
     Indication: ASTHMA
  9. ALBUTEROL SULFATE [Concomitant]
     Indication: BRONCHITIS
     Dosage: 3 MG, AS NEEDED
  10. ALBUTEROL SULFATE [Concomitant]
     Indication: ASTHMA
  11. HYDROCODONE [Concomitant]
     Indication: PAIN
     Dosage: ^7.25/325^MG, 4X/DAY
  12. CLONAZEPAM [Concomitant]
     Indication: MUSCLE RELAXANT THERAPY
     Dosage: 10 MG, 3X/DAY
  13. EXCEDRIN (ASPIRIN/CAFFEINE/PARACETAMOL) [Concomitant]
     Indication: MIGRAINE
     Dosage: 400 MG, AS NEEDED
  14. FLUDROCORTISONE [Concomitant]
     Indication: HYPOTENSION
     Dosage: 0.1 MG, 2X/DAY
  15. METHYLPHENIDATE [Concomitant]
     Indication: SOMNOLENCE
     Dosage: 10 MG, 3X/DAY
  16. CYMBALTA [Concomitant]
     Indication: DEPRESSION
     Dosage: 60 MG, 1X/DAY

REACTIONS (9)
  - Rib fracture [Unknown]
  - Dyspnoea [Recovered/Resolved]
  - Fall [Unknown]
  - Loss of consciousness [Recovered/Resolved]
  - Ligament sprain [Recovered/Resolved]
  - Neck injury [Unknown]
  - Head injury [Unknown]
  - Headache [Unknown]
  - Neck pain [Unknown]
